FAERS Safety Report 14307196 (Version 1)
Quarter: 2017Q4

REPORT INFORMATION
  Report Type: Other
  Country: CA (occurrence: CA)
  Receive Date: 20171220
  Receipt Date: 20171220
  Transmission Date: 20180321
  Serious: Yes (Other)
  Sender: FDA-Public Use
  Company Number: CA-APOTEX-2017AP022881

PATIENT

DRUGS (2)
  1. PAXIL [Suspect]
     Active Substance: PAROXETINE HYDROCHLORIDE
     Indication: OBSESSIVE-COMPULSIVE DISORDER
     Dosage: 150 MG, QD
     Route: 048
  2. PAXIL [Suspect]
     Active Substance: PAROXETINE HYDROCHLORIDE
     Indication: SOCIAL ANXIETY DISORDER

REACTIONS (21)
  - Headache [Recovering/Resolving]
  - Nausea [Recovering/Resolving]
  - Pain [Recovering/Resolving]
  - Sexual dysfunction [Recovering/Resolving]
  - Suicidal behaviour [Recovering/Resolving]
  - Dysgraphia [Recovering/Resolving]
  - Disturbance in attention [Recovering/Resolving]
  - Irritability [Recovering/Resolving]
  - Paraesthesia [Recovering/Resolving]
  - Withdrawal syndrome [Recovering/Resolving]
  - Depressed level of consciousness [Recovering/Resolving]
  - Hypomania [Recovering/Resolving]
  - Asthma [Recovering/Resolving]
  - Anxiety [Recovering/Resolving]
  - Dizziness [Recovering/Resolving]
  - Mental impairment [Recovering/Resolving]
  - Dyspepsia [Recovering/Resolving]
  - Insomnia [Recovering/Resolving]
  - Vomiting [Recovering/Resolving]
  - Loss of personal independence in daily activities [Recovering/Resolving]
  - Mood swings [Recovering/Resolving]
